FAERS Safety Report 21076480 (Version 2)
Quarter: 2022Q3

REPORT INFORMATION
  Report Type: Report from Study
  Country: CA (occurrence: CA)
  Receive Date: 20220713
  Receipt Date: 20220811
  Transmission Date: 20221027
  Serious: Yes (Hospitalization)
  Sender: FDA-Public Use
  Company Number: CA-GLAXOSMITHKLINE-CA2022104247

PATIENT

DRUGS (2)
  1. MEPOLIZUMAB [Suspect]
     Active Substance: MEPOLIZUMAB
     Indication: Asthma
     Dosage: 100 MG, Z, EVERY 4 WEEKS
     Route: 058
     Dates: start: 20210212
  2. MEPOLIZUMAB [Suspect]
     Active Substance: MEPOLIZUMAB
     Indication: Asthma
     Dosage: 100 MG, Z, EVERY 4 WEEKS
     Route: 058
     Dates: start: 20210212

REACTIONS (1)
  - Transurethral bladder resection [Unknown]

NARRATIVE: CASE EVENT DATE: 20220701
